FAERS Safety Report 5217170-8 (Version None)
Quarter: 2007Q1

REPORT INFORMATION
  Report Type: 
  Country: None (occurrence: None)
  Receive Date: 20070122
  Receipt Date: 20070122
  Transmission Date: 20070707
  Serious: Yes (Hospitalization)
  Sender: FDA-Public Use
  Company Number: None

PATIENT
  Age: 63 Year
  Sex: Male
  Weight: 85.7298 kg

DRUGS (4)
  1. AVASTIN [Suspect]
     Indication: RENAL CELL CARCINOMA STAGE UNSPECIFIED
     Dosage: 868MG EVERY 2 WEEKS IV
     Route: 042
     Dates: start: 20061106, end: 20061130
  2. ALDESLEUKIN (NOVARTIS) [Suspect]
     Indication: RENAL CELL CARCINOMA STAGE UNSPECIFIED
     Dosage: 52.6MU Q8HRS, DAYS 1-5 IV
     Route: 042
     Dates: start: 20061130, end: 20061204
  3. LEVOFLOXACIN [Concomitant]
  4. RHINOCORT [Concomitant]

REACTIONS (12)
  - BLOOD CREATININE INCREASED [None]
  - BLOOD PRESSURE INCREASED [None]
  - DYSPNOEA [None]
  - HYPERSOMNIA [None]
  - MENTAL STATUS CHANGES [None]
  - MUSCULOSKELETAL CHEST PAIN [None]
  - PLATELET COUNT DECREASED [None]
  - PULMONARY ARTERY THROMBOSIS [None]
  - PULMONARY EMBOLISM [None]
  - PYREXIA [None]
  - SINUS TACHYCARDIA [None]
  - SPEECH DISORDER [None]
